FAERS Safety Report 7585815-3 (Version None)
Quarter: 2011Q2

REPORT INFORMATION
  Report Type: 
  Country: None (occurrence: None)
  Receive Date: 20110624
  Receipt Date: 20110613
  Transmission Date: 20111010
  Serious: Yes (Hospitalization)
  Sender: FDA-Public Use
  Company Number: AUR-APL-2011-01906

PATIENT
  Age: 36 Year
  Sex: Female

DRUGS (7)
  1. AMOXICILLIN [Suspect]
     Indication: TOOTH ABSCESS
     Dosage: 1500 MG (500 MG, 3 IN 1 D), ORAL
     Route: 048
     Dates: start: 20110504
  2. IBUPROFEN [Concomitant]
  3. DICLOFENAC SODIUM [Concomitant]
  4. LEVETIRACETAM [Concomitant]
  5. CHLORPHENAMINE MALEATE (CHLOPHENAMINE MALEATE) [Concomitant]
  6. ACETAMINOPHEN [Concomitant]
  7. PHENOXYMETHYLPENICILLIN [Suspect]
     Indication: PAIN
     Dosage: AS REQUIRED, ORAL
     Route: 048

REACTIONS (5)
  - HYPOKALAEMIA [None]
  - HYPOXIA [None]
  - COLITIS [None]
  - INTENTIONAL DRUG MISUSE [None]
  - DENTAL DISCOMFORT [None]
